FAERS Safety Report 10041322 (Version 1)
Quarter: 2014Q1

REPORT INFORMATION
  Report Type: Spontaneous
  Country: US (occurrence: None)
  Receive Date: 20140326
  Receipt Date: 20140326
  Transmission Date: 20141002
  Serious: Yes (Other)
  Sender: FDA-Public Use
  Company Number: None

PATIENT
  Age: 40 Year
  Sex: Male
  Weight: 108.8 kg

DRUGS (6)
  1. CYCLOPHOSPHAMIDE [Suspect]
  2. DOXORUBICIN HYDROCHLORIDE [Suspect]
  3. ETOPOSIDE (VP-16) [Suspect]
  4. PREDNISONE [Suspect]
  5. RITUXIMAB (MUOB C2B8 ANTI CD20,CHIMERIC) [Suspect]
  6. VINCRISTINE SULFATE [Concomitant]

REACTIONS (5)
  - Rectal haemorrhage [None]
  - Haemoglobin decreased [None]
  - Diverticulum [None]
  - Melaena [None]
  - Hypotension [None]
